FAERS Safety Report 4721083-5 (Version None)
Quarter: 2005Q3

REPORT INFORMATION
  Report Type: 
  Country: None (occurrence: None)
  Receive Date: 20050719
  Receipt Date: 20041117
  Transmission Date: 20060218
  Serious: Yes (Other)
  Sender: FDA-Public Use
  Company Number: 2004092356

PATIENT
  Age: 44 Year
  Sex: Female
  Weight: 88.4514 kg

DRUGS (4)
  1. CELEBREX [Suspect]
     Indication: ARTHRITIS
     Dosage: 200 MG (200 MG,1 IN 1 D), ORAL
     Route: 048
     Dates: end: 20040101
  2. BEXTRA [Suspect]
     Indication: ARTHRITIS
     Dosage: 10 MG (10 MG,1 IN 1 D), ORAL
     Route: 048
     Dates: start: 20040101, end: 20040101
  3. METOPROLOL TARTRATE [Concomitant]
  4. OLMESARTAN MEDOXOMIL (OLMESARTAN MEDOXOMIL) [Concomitant]

REACTIONS (5)
  - DRUG INEFFECTIVE [None]
  - RASH PRURITIC [None]
  - SKIN BURNING SENSATION [None]
  - SKIN DISCOLOURATION [None]
  - SKIN DISORDER [None]
